FAERS Safety Report 5606840-5 (Version None)
Quarter: 2008Q1

REPORT INFORMATION
  Report Type: 
  Country: None (occurrence: None)
  Receive Date: 20080129
  Receipt Date: 20080108
  Transmission Date: 20080703
  Serious: No
  Sender: FDA-Public Use
  Company Number: US-BOEHRINGER INGELHEIM GMBH, GERMANY-2008-BP-00380BP

PATIENT
  Sex: Male

DRUGS (10)
  1. COMBIVENT [Suspect]
     Indication: CHRONIC OBSTRUCTIVE PULMONARY DISEASE
     Route: 055
     Dates: start: 20071201
  2. ALBUTEROL [Concomitant]
  3. DUONEB [Concomitant]
  4. COZAAR [Concomitant]
     Indication: HYPERTENSION
  5. SYMSTATIN [Concomitant]
     Indication: BLOOD CHOLESTEROL INCREASED
  6. PROPRANOLOL [Concomitant]
     Indication: HYPERTENSION
  7. DIGITEK [Concomitant]
     Indication: CARDIAC DISORDER
  8. FOLIC ACID [Concomitant]
     Indication: ARTERIAL DISORDER
  9. INSULIN [Concomitant]
     Indication: DIABETES MELLITUS
  10. ASPIRIN [Concomitant]

REACTIONS (1)
  - BLOOD GLUCOSE INCREASED [None]
